FAERS Safety Report 15621282 (Version 1)
Quarter: 2018Q4

REPORT INFORMATION
  Report Type: Spontaneous
  Country: AU (occurrence: AU)
  Receive Date: 20181115
  Receipt Date: 20181115
  Transmission Date: 20190205
  Serious: Yes (Death, Life-Threatening, Hospitalization, Other)
  Sender: FDA-Public Use
  Company Number: AU-MYLANLABS-2018M1084278

PATIENT
  Age: 46 Year
  Sex: Female

DRUGS (10)
  1. WARFARIN [Concomitant]
     Active Substance: WARFARIN
     Indication: LUPUS NEPHRITIS
     Route: 065
  2. VINORELBINE [Suspect]
     Active Substance: VINORELBINE\VINORELBINE TARTRATE
     Indication: DIFFUSE LARGE B-CELL LYMPHOMA STAGE IV
     Dosage: PALLIATIVE SECOND-LINE CHEMOTHERAPY REGIMEN
     Route: 065
  3. ALLOPURINOL. [Concomitant]
     Active Substance: ALLOPURINOL
     Indication: PROPHYLAXIS
     Route: 065
  4. CYCLOPHOSPHAMIDE. [Suspect]
     Active Substance: CYCLOPHOSPHAMIDE
     Indication: LUPUS NEPHRITIS
     Dosage: THE PATIENT HAD PREVIOUSLY RECEIVED CYCLOPHOSPHAMIDE FOR LUPUS NEPHRITIS, AND AGAIN RECEIVED 6 CY...
     Route: 065
  5. GEMCITABINE [Suspect]
     Active Substance: GEMCITABINE\GEMCITABINE HYDROCHLORIDE
     Indication: DIFFUSE LARGE B-CELL LYMPHOMA STAGE IV
     Dosage: PALLIATIVE SECOND-LINE CHEMOTHERAPY REGIMEN
     Route: 065
  6. AZATHIOPRINE. [Suspect]
     Active Substance: AZATHIOPRINE
     Indication: LUPUS NEPHRITIS
     Route: 065
  7. VINCRISTINE [Suspect]
     Active Substance: VINCRISTINE
     Indication: DIFFUSE LARGE B-CELL LYMPHOMA STAGE IV
     Dosage: RECEIVED 6 CYCLES OF R-CHOP REGIMEN
     Route: 065
  8. RITUXIMAB. [Suspect]
     Active Substance: RITUXIMAB
     Indication: LUPUS NEPHRITIS
     Dosage: THE PATIENT HAD PREVIOUSLY RECEIVED RITUXIMAB FOR LUPUS NEPHRITIS AND AGAIN RECEIVED 6 CYCLES AS ...
     Route: 065
  9. PREDNISOLONE. [Suspect]
     Active Substance: PREDNISOLONE
     Indication: LUPUS NEPHRITIS
     Dosage: THE PATIENT HAD PREVIOUSLY RECEIVED PREDNISOLONE FOR LUPUS NEPHRITIS, AND AGAIN RECEIVED 6 CYCLES...
     Route: 065
  10. DOXORUBICIN [Suspect]
     Active Substance: DOXORUBICIN
     Indication: DIFFUSE LARGE B-CELL LYMPHOMA STAGE IV
     Dosage: RECEIVED 6 CYCLES OF R-CHOP REGIMEN
     Route: 065

REACTIONS (4)
  - Diffuse large B-cell lymphoma stage IV [Fatal]
  - Febrile neutropenia [Unknown]
  - Drug ineffective [Unknown]
  - Acute kidney injury [Unknown]
